FAERS Safety Report 7201954-0 (Version None)
Quarter: 2010Q4

REPORT INFORMATION
  Report Type: 
  Country: None (occurrence: None)
  Receive Date: 20101215
  Receipt Date: 20101206
  Transmission Date: 20110411
  Serious: Yes (Other)
  Sender: FDA-Public Use
  Company Number: 770673

PATIENT
  Age: 57 Year
  Sex: Male

DRUGS (1)
  1. LEVOPHED [Suspect]
     Indication: PRODUCT USED FOR UNKNOWN INDICATION
     Dosage: 105 MCG,
     Dates: start: 20100101, end: 20100101

REACTIONS (4)
  - CHEST DISCOMFORT [None]
  - CHEST PAIN [None]
  - DEVICE COMPUTER ISSUE [None]
  - INCORRECT DOSE ADMINISTERED [None]
